FAERS Safety Report 5297563-3 (Version None)
Quarter: 2007Q2

REPORT INFORMATION
  Report Type: 
  Country: None (occurrence: None)
  Receive Date: 20070412
  Receipt Date: 20070412
  Transmission Date: 20071010
  Serious: Yes (Life-Threatening, Hospitalization)
  Sender: FDA-Public Use
  Company Number: None

PATIENT
  Sex: Female
  Weight: 14.2 kg

DRUGS (1)
  1. IMURAN [Suspect]
     Indication: B PRECURSOR TYPE ACUTE LEUKAEMIA
     Dosage: 50 MG DAILY PO
     Route: 048
     Dates: start: 20061109, end: 20070308

REACTIONS (9)
  - BLOOD ELECTROLYTES ABNORMAL [None]
  - DRUG DISPENSING ERROR [None]
  - HYPOTENSION [None]
  - INFLUENZA SEROLOGY POSITIVE [None]
  - MEDICATION ERROR [None]
  - RENAL FAILURE [None]
  - SEPSIS [None]
  - TACHYCARDIA [None]
  - WRONG DRUG ADMINISTERED [None]
